FAERS Safety Report 7828882 (Version 2)
Quarter: 2021Q4

REPORT INFORMATION
  Report Type: Spontaneous
  Country: JP (occurrence: JP)
  Receive Date: 20110225
  Receipt Date: 20211110
  Transmission Date: 20220303
  Serious: Yes (Hospitalization)
  Sender: FDA-Public Use
  Company Number: PHHY2011JP11668

PATIENT
  Age: 73 Year
  Sex: Female

DRUGS (11)
  1. ROPIVACAINE [Suspect]
     Active Substance: ROPIVACAINE
     Indication: Product used for unknown indication
     Dosage: 0.25 % 20 ML
     Route: 065
  2. ROPIVACAINE [Suspect]
     Active Substance: ROPIVACAINE
     Dosage: 2 % 2 ML/H
     Route: 065
  3. FENTANYL [Suspect]
     Active Substance: FENTANYL
     Indication: Product used for unknown indication
     Dosage: 50 UG, UNK
     Route: 065
  4. PROPOFOL [Suspect]
     Active Substance: PROPOFOL
     Indication: Product used for unknown indication
     Dosage: 2MG/KG/H
     Route: 065
  5. PROPOFOL [Suspect]
     Active Substance: PROPOFOL
     Dosage: 50 MG, UNK
     Route: 065
  6. PROPOFOL [Suspect]
     Active Substance: PROPOFOL
     Dosage: 3-4 MG/KG/H
     Route: 065
  7. LIDOCAINE [Suspect]
     Active Substance: LIDOCAINE
     Indication: Product used for unknown indication
     Dosage: 1% 3 ML
     Route: 065
  8. LIDOCAINE [Suspect]
     Active Substance: LIDOCAINE
     Dosage: 1% 15 ML
     Route: 065
  9. FLURBIPROFEN [Suspect]
     Active Substance: FLURBIPROFEN
     Indication: Product used for unknown indication
     Dosage: 50 MG, UNK
     Route: 065
  10. MIDAZOLAM [Suspect]
     Active Substance: MIDAZOLAM
     Indication: Product used for unknown indication
     Dosage: 1 MG, UNK
     Route: 065
  11. MIDAZOLAM [Suspect]
     Active Substance: MIDAZOLAM
     Dosage: 3 MG, UNK
     Route: 065

REACTIONS (2)
  - Toxicity to various agents [Unknown]
  - Generalised tonic-clonic seizure [Recovered/Resolved]
